FAERS Safety Report 9257063 (Version 1)
Quarter: 2013Q2

REPORT INFORMATION
  Report Type: Spontaneous
  Country: US (occurrence: None)
  Receive Date: 20130424
  Receipt Date: 20130424
  Transmission Date: 20140414
  Serious: Yes (Hospitalization)
  Sender: FDA-Public Use
  Company Number: 2013-120

PATIENT
  Age: 13 Month
  Sex: Female
  Weight: 9.4 kg

DRUGS (2)
  1. CLOZAPINE [Suspect]
     Route: 048
  2. CEFACLOR (CEFACLOR) [Concomitant]

REACTIONS (16)
  - Toxicity to various agents [None]
  - Accidental exposure to product [None]
  - Disturbance in attention [None]
  - Consciousness fluctuating [None]
  - Atelectasis [None]
  - Encephalopathy [None]
  - Neutrophilia [None]
  - Coma [None]
  - Tachycardia [None]
  - Dysarthria [None]
  - Somnolence [None]
  - Aspiration [None]
  - Leukocytosis [None]
  - Tachypnoea [None]
  - Sopor [None]
  - Agitation [None]
